FAERS Safety Report 7357250-4 (Version None)
Quarter: 2011Q1

REPORT INFORMATION
  Report Type: 
  Country: None (occurrence: None)
  Receive Date: 20110308
  Receipt Date: 20100712
  Transmission Date: 20110831
  Serious: Yes (Death)
  Sender: FDA-Public Use
  Company Number: 7043273

PATIENT
  Age: 56 Year
  Sex: Male

DRUGS (9)
  1. CLOPIDOGREL [Concomitant]
  2. EPINEPHRINE [Concomitant]
  3. INSULIN (IINSULIN) [Concomitant]
  4. DEXTROSE (GLUCOSE) (INTRAVENOUS INFUSION) [Concomitant]
  5. BICARBONATE (SODIUM BICARBONATE) [Concomitant]
  6. HYDROXOCOBALAMIN [Suspect]
     Indication: POISONING
     Dosage: 5 GM, INTRAVENOUS (NOT OTHERWISE SPECIFIED)
     Route: 042
  7. SLOW RELEASE MORPHINE SULFATE (MORPHINE SULFATE) [Concomitant]
  8. POTASSIUM FERROCYANIDE (FERRIC FERROCYANIDE) [Concomitant]
  9. ZOPICLONE (ZOPICLONE) [Concomitant]

REACTIONS (12)
  - CONTINUOUS HAEMODIAFILTRATION [None]
  - GASTRIC HAEMORRHAGE [None]
  - ELECTROCARDIOGRAM QRS COMPLEX PROLONGED [None]
  - MYDRIASIS [None]
  - DIARRHOEA [None]
  - CARDIO-RESPIRATORY ARREST [None]
  - VOMITING [None]
  - HYPOXIC-ISCHAEMIC ENCEPHALOPATHY [None]
  - DRUG INEFFECTIVE [None]
  - HYPERKALAEMIA [None]
  - BRADYCARDIA [None]
  - BLOOD CYANIDE INCREASED [None]
